FAERS Safety Report 25372741 (Version 1)
Quarter: 2025Q2

REPORT INFORMATION
  Report Type: Spontaneous
  Country: GB (occurrence: GB)
  Receive Date: 20250529
  Receipt Date: 20250529
  Transmission Date: 20250716
  Serious: Yes (Hospitalization, Other)
  Sender: STRIDES
  Company Number: GB-STRIDES NORDIC APS-2025SP006591

PATIENT

DRUGS (3)
  1. COLCHICINE [Suspect]
     Active Substance: COLCHICINE
     Indication: Pericardial effusion
     Route: 065
  2. IBUPROFEN [Concomitant]
     Active Substance: IBUPROFEN
     Indication: Product used for unknown indication
     Route: 065
  3. PREDNISOLONE [Concomitant]
     Active Substance: PREDNISOLONE
     Indication: Product used for unknown indication
     Route: 065

REACTIONS (9)
  - Cardiovascular disorder [Recovering/Resolving]
  - Metabolic acidosis [Recovering/Resolving]
  - Hyperpyrexia [Recovering/Resolving]
  - Renal disorder [Recovering/Resolving]
  - Liver disorder [Recovering/Resolving]
  - Coagulopathy [Recovering/Resolving]
  - Thrombocytopenia [Recovering/Resolving]
  - Toxicity to various agents [Recovering/Resolving]
  - Off label use [Unknown]
